FAERS Safety Report 7218897-9 (Version None)
Quarter: 2011Q1

REPORT INFORMATION
  Report Type: 
  Country: None (occurrence: None)
  Receive Date: 20110110
  Receipt Date: 20110104
  Transmission Date: 20110831
  Serious: Yes (Other)
  Sender: FDA-Public Use
  Company Number: US-MERCK-1011USA03450

PATIENT
  Age: 32 Year
  Sex: Male

DRUGS (1)
  1. PROPECIA [Suspect]
     Indication: ALOPECIA
     Route: 048
     Dates: start: 20090902, end: 20090930

REACTIONS (5)
  - PENIS DISORDER [None]
  - ERYTHEMA [None]
  - SUICIDAL IDEATION [None]
  - ERECTILE DYSFUNCTION [None]
  - LOSS OF LIBIDO [None]
